FAERS Safety Report 8886018 (Version 5)
Quarter: 2014Q3

REPORT INFORMATION
  Report Type: Spontaneous
  Country: US (occurrence: US)
  Receive Date: 20121105
  Receipt Date: 20140916
  Transmission Date: 20150326
  Serious: Yes (Hospitalization, Other)
  Sender: FDA-Public Use
  Company Number: US-009507513-1210USA013146

PATIENT
  Sex: Male

DRUGS (4)
  1. FLUTICASONE [Concomitant]
     Active Substance: FLUTICASONE\FLUTICASONE PROPIONATE
     Indication: HYPERSENSITIVITY
     Dosage: UNK
     Dates: start: 200605, end: 200910
  2. PROPECIA [Suspect]
     Active Substance: FINASTERIDE
     Indication: ANDROGENETIC ALOPECIA
     Dosage: 1 MG, UNK
     Route: 048
     Dates: start: 20060818, end: 20080228
  3. LISINOPRIL. [Concomitant]
     Active Substance: LISINOPRIL
     Indication: HYPERTENSION
     Dosage: UNK
     Dates: start: 200506
  4. HYDROCHLOROT [Concomitant]
     Active Substance: HYDROCHLOROTHIAZIDE
     Indication: HYPERTENSION
     Dosage: UNK
     Dates: start: 200306

REACTIONS (40)
  - Loss of consciousness [Unknown]
  - Infection [Unknown]
  - Vertigo [Unknown]
  - Melanocytic naevus [Unknown]
  - Libido decreased [Unknown]
  - Sexual dysfunction [Not Recovered/Not Resolved]
  - Surgery [Unknown]
  - Eye disorder [Unknown]
  - Erectile dysfunction [Unknown]
  - Hypoacusis [Recovering/Resolving]
  - Subdural haematoma [Recovered/Resolved]
  - Anxiety [Unknown]
  - Pain [Unknown]
  - Insomnia [Unknown]
  - Gastrooesophageal reflux disease [Unknown]
  - Arthralgia [Unknown]
  - Shoulder operation [Unknown]
  - Fall [Unknown]
  - Viral upper respiratory tract infection [Unknown]
  - Seborrhoeic keratosis [Unknown]
  - Telangiectasia [Unknown]
  - Dysgeusia [Unknown]
  - Cognitive disorder [Not Recovered/Not Resolved]
  - Infection [Unknown]
  - Vertigo positional [Unknown]
  - Type 2 diabetes mellitus [Unknown]
  - Major depression [Unknown]
  - Concussion [Unknown]
  - Brain contusion [Recovered/Resolved]
  - Dyspepsia [Unknown]
  - Sinusitis [Unknown]
  - Dyslipidaemia [Unknown]
  - Major depression [Unknown]
  - Depression [Unknown]
  - Acne [Unknown]
  - Skull fractured base [Unknown]
  - Clavicle fracture [Unknown]
  - Paresis cranial nerve [Unknown]
  - Cranial nerve injury [Unknown]
  - Parosmia [Unknown]

NARRATIVE: CASE EVENT DATE: 200611
